FAERS Safety Report 15742916 (Version 3)
Quarter: 2019Q1

REPORT INFORMATION
  Report Type: Spontaneous
  Country: FR (occurrence: FR)
  Receive Date: 20181220
  Receipt Date: 20190213
  Transmission Date: 20190417
  Serious: Yes (Hospitalization)
  Sender: FDA-Public Use
  Company Number: FR-BAXTER-2018BAX030324

PATIENT
  Age: 76 Year
  Sex: Female
  Weight: 60 kg

DRUGS (21)
  1. DROPERIDOL AGUETTANT [Suspect]
     Active Substance: DROPERIDOL
     Indication: GENERAL ANAESTHESIA
     Route: 042
     Dates: start: 20181102, end: 20181102
  2. PARACETAMOL [Suspect]
     Active Substance: ACETAMINOPHEN
     Indication: ANALGESIC INTERVENTION SUPPORTIVE THERAPY
     Dosage: IF NEEDED
     Route: 048
     Dates: start: 20181103
  3. CHIROCAINE [Suspect]
     Active Substance: LEVOBUPIVACAINE HYDROCHLORIDE
     Indication: GENERAL ANAESTHESIA
     Route: 042
     Dates: start: 20181102, end: 20181102
  4. PROPOFOL. [Suspect]
     Active Substance: PROPOFOL
     Indication: GENERAL ANAESTHESIA
     Route: 042
     Dates: start: 20181102, end: 20181102
  5. MIDAZOLAM [Suspect]
     Active Substance: MIDAZOLAM HYDROCHLORIDE
     Indication: GENERAL ANAESTHESIA
     Route: 042
     Dates: start: 20181102, end: 20181102
  6. LANSOPRAZOLE MYLAN [Suspect]
     Active Substance: LANSOPRAZOLE
     Indication: PROPHYLAXIS AGAINST GASTROINTESTINAL ULCER
     Route: 048
     Dates: start: 20181102, end: 20181114
  7. LOVENOX [Suspect]
     Active Substance: ENOXAPARIN SODIUM
     Indication: ANTICOAGULANT THERAPY
     Route: 058
     Dates: start: 20181102, end: 20181111
  8. EXACYL [Suspect]
     Active Substance: TRANEXAMIC ACID
     Indication: HAEMORRHAGE PROPHYLAXIS
     Dosage: 1 G/10 ML, DRINKABLE SOLUTION
     Route: 048
     Dates: start: 20181103, end: 20181103
  9. CEFAZOLINE MYLAN [Suspect]
     Active Substance: CEFAZOLIN SODIUM
     Indication: ANTIBIOTIC PROPHYLAXIS
     Dosage: POWDER FOR INJECTABLE SOLUTION (IM-IV)
     Route: 042
     Dates: start: 20181102, end: 20181102
  10. EPHEDRINE AGUETTANT [Suspect]
     Active Substance: EPHEDRINE
     Indication: GENERAL ANAESTHESIA
     Route: 042
     Dates: start: 20181102, end: 20181102
  11. PARACETAMOL B BRAUN [Suspect]
     Active Substance: ACETAMINOPHEN
     Indication: ANALGESIC INTERVENTION SUPPORTIVE THERAPY
     Route: 042
     Dates: start: 20181102, end: 20181103
  12. NEFOPAM MEDISOL [Suspect]
     Active Substance: NEFOPAM HYDROCHLORIDE
     Indication: ANALGESIC INTERVENTION SUPPORTIVE THERAPY
     Dosage: IF NEEDED
     Route: 048
     Dates: start: 20181103, end: 20181104
  13. KETAMINE RENAUDIN [Suspect]
     Active Substance: KETAMINE
     Indication: GENERAL ANAESTHESIA
     Route: 042
     Dates: start: 20181102, end: 20181102
  14. MOVICOL [Suspect]
     Active Substance: POLYETHYLENE GLYCOL 3350\POTASSIUM CHLORIDE\SODIUM BICARBONATE\SODIUM CHLORIDE
     Indication: LAXATIVE SUPPORTIVE CARE
     Route: 048
     Dates: start: 20181111
  15. POLYIONIQUE FORMULE 1A G5 BAXTER, SOLUTION POUR PERFUSION [Suspect]
     Active Substance: DEXTROSE\POTASSIUM CHLORIDE\SODIUM CHLORIDE
     Indication: FLUID REPLACEMENT
     Dosage: SOLUTION POUR PERFUSION
     Route: 042
     Dates: start: 20181103, end: 20181103
  16. SUFENTANIL MYLAN [Suspect]
     Active Substance: SUFENTANIL
     Indication: GENERAL ANAESTHESIA
     Route: 042
     Dates: start: 20181102, end: 20181102
  17. CISATRACURIUM MYLAN [Suspect]
     Active Substance: CISATRACURIUM
     Indication: GENERAL ANAESTHESIA
     Route: 042
     Dates: start: 20181102, end: 20181102
  18. DEXAMETHASONE MYLAN [Suspect]
     Active Substance: DEXAMETHASONE
     Indication: GENERAL ANAESTHESIA
     Route: 042
     Dates: start: 20181102, end: 20181102
  19. MIVACRON [Suspect]
     Active Substance: MIVACURIUM CHLORIDE
     Indication: GENERAL ANAESTHESIA
     Route: 042
     Dates: start: 20181102, end: 20181102
  20. VENOFER [Suspect]
     Active Substance: IRON SUCROSE
     Indication: ANAEMIA PROPHYLAXIS
     Dosage: SOLUTION INJECTABLE (IV)
     Route: 042
     Dates: start: 20181103, end: 20181103
  21. KETOPROFENE MEDAC [Suspect]
     Active Substance: KETOPROFEN
     Indication: ANTIINFLAMMATORY THERAPY
     Dosage: 100 MG/4ML, SOLUTION TO BE DILUTED FOR PERFUSION
     Route: 042
     Dates: start: 20181103, end: 20181103

REACTIONS (1)
  - Acute generalised exanthematous pustulosis [Recovered/Resolved]

NARRATIVE: CASE EVENT DATE: 20181114
